FAERS Safety Report 9128066 (Version 1)
Quarter: 2013Q1

REPORT INFORMATION
  Report Type: Not Available
  Country: GB (occurrence: GB)
  Receive Date: 20130228
  Receipt Date: 20130228
  Transmission Date: 20140127
  Serious: Yes (Hospitalization, Other)
  Sender: FDA-Public Use
  Company Number: GB-PURDUE-USA-2012-0097220

PATIENT
  Age: 45 Year
  Sex: Female

DRUGS (1)
  1. TRAMADOL (SIMILAR TO NDA 21-745) [Suspect]
     Indication: NECK PAIN
     Dosage: 200 MG, DAILY
     Route: 048
     Dates: start: 201212, end: 20121205

REACTIONS (5)
  - Overdose [Unknown]
  - Withdrawal syndrome [Unknown]
  - Metamorphopsia [Unknown]
  - Liver function test abnormal [Unknown]
  - Hallucination [Not Recovered/Not Resolved]
